FAERS Safety Report 7992503-8 (Version None)
Quarter: 2011Q4

REPORT INFORMATION
  Report Type: 
  Country: None (occurrence: None)
  Receive Date: 20111219
  Receipt Date: 20111209
  Transmission Date: 20120403
  Serious: Yes (Other)
  Sender: FDA-Public Use
  Company Number: US-PFIZER INC-2011301599

PATIENT
  Sex: Female
  Weight: 58.957 kg

DRUGS (1)
  1. PREPARATION H MEDICATED WIPES [Suspect]
     Indication: THERAPEUTIC SKIN CARE TOPICAL
     Dosage: UNK, AS NEEDED

REACTIONS (4)
  - HYPERTENSION [None]
  - OFF LABEL USE [None]
  - HYPERSENSITIVITY [None]
  - NASAL DISCOMFORT [None]
